FAERS Safety Report 9315588 (Version 2)
Quarter: 2013Q2

REPORT INFORMATION
  Report Type: Spontaneous
  Country: US (occurrence: US)
  Receive Date: 20130529
  Receipt Date: 20130625
  Transmission Date: 20140414
  Serious: Yes (Hospitalization)
  Sender: FDA-Public Use
  Company Number: US-PURDUE-USA-2013-0102729

PATIENT
  Age: 82 Year
  Sex: Female
  Weight: 69.84 kg

DRUGS (7)
  1. SENOKOT-S [Suspect]
     Indication: CONSTIPATION
     Dosage: 17.2/100MG
     Route: 048
     Dates: start: 20130508, end: 20130508
  2. OMEPRAZOLE [Concomitant]
     Indication: GASTROOESOPHAGEAL REFLUX DISEASE
     Dosage: 40 MG, DAILY
     Route: 048
     Dates: start: 201303
  3. OMEPRAZOLE [Concomitant]
     Dosage: 20 MG, DAILY
  4. LEVOTHYROXINE [Concomitant]
     Indication: THYROID DISORDER
     Dosage: 50 MCG, DAILY
     Route: 048
  5. VITAMIN B12                        /00056201/ [Concomitant]
     Indication: PRODUCT USED FOR UNKNOWN INDICATION
     Dosage: 1 TABLET, DAILY
     Route: 048
  6. VITAMIN D                          /00107901/ [Concomitant]
     Indication: PRODUCT USED FOR UNKNOWN INDICATION
     Dosage: 1 TABLET, DAILY
     Route: 048
  7. BIOTIN [Concomitant]
     Indication: PRODUCT USED FOR UNKNOWN INDICATION
     Dosage: 1 TABLET, DAILY
     Route: 048

REACTIONS (4)
  - Proctalgia [Recovered/Resolved]
  - Rectal haemorrhage [Recovered/Resolved]
  - Tremor [Recovered/Resolved]
  - Abdominal pain [Recovered/Resolved]
